FAERS Safety Report 6283619-5 (Version None)
Quarter: 2009Q3

REPORT INFORMATION
  Report Type: 
  Country: None (occurrence: None)
  Receive Date: 20090724
  Receipt Date: 20090511
  Transmission Date: 20100115
  Serious: Yes (Hospitalization)
  Sender: FDA-Public Use
  Company Number: US-ALEXION-A200900382

PATIENT
  Sex: Female

DRUGS (3)
  1. SOLIRIS [Suspect]
     Dosage: UNK
  2. NEUPOGEN [Concomitant]
  3. PROCRIT                            /00909301/ [Concomitant]

REACTIONS (5)
  - DYSPNOEA [None]
  - HAEMOGLOBIN DECREASED [None]
  - INFECTION [None]
  - PYREXIA [None]
  - WHITE BLOOD CELL COUNT DECREASED [None]
